FAERS Safety Report 4277104-X (Version None)
Quarter: 2004Q1

REPORT INFORMATION
  Report Type: 
  Country: None (occurrence: None)
  Receive Date: 20040120
  Receipt Date: 20040120
  Transmission Date: 20041129
  Serious: Yes (Hospitalization)
  Sender: FDA-Public Use
  Company Number: None

PATIENT
  Sex: Male
  Weight: 80.2867 kg

DRUGS (16)
  1. WARFARIN SODIUM [Suspect]
     Indication: CEREBROVASCULAR ACCIDENT
     Dosage: 5 MG PO QD EXCEPT 2.5 MG ON MONDAY
     Route: 048
     Dates: start: 20031120, end: 20031125
  2. LISINOPRIL [Concomitant]
  3. PSYLLIUM [Concomitant]
  4. LATANOPROST [Concomitant]
  5. MENTHOL/METHYL SALICYLATE [Concomitant]
  6. CALCIUM/VITAMIN D [Concomitant]
  7. BRIMONIDINE TARTRATE [Concomitant]
  8. SODIUM CHLORIDE [Concomitant]
  9. FUORSEMIDE [Concomitant]
  10. ALLOPURINOL [Concomitant]
  11. GLYBURIDE [Concomitant]
  12. METOPROLOL TARTRATE [Concomitant]
  13. ISOSORBIDE MONONITRATE [Concomitant]
  14. ACETAMINOPHEN [Concomitant]
  15. FLUNISOLIDE [Concomitant]
  16. NITROGLYCERIN [Concomitant]

REACTIONS (2)
  - FAECES DISCOLOURED [None]
  - MELAENA [None]
